FAERS Safety Report 7432280-2 (Version None)
Quarter: 2011Q2

REPORT INFORMATION
  Report Type: 
  Country: None (occurrence: None)
  Receive Date: 20110414
  Receipt Date: 20110405
  Transmission Date: 20111010
  Serious: Yes (Hospitalization)
  Sender: FDA-Public Use
  Company Number: 884910

PATIENT
  Age: 65 Year
  Sex: Male

DRUGS (1)
  1. VINORELBINE TARTRATE [Suspect]
     Indication: METASTATIC NEOPLASM
     Dosage: NOT REPORTED;

REACTIONS (8)
  - RESPIRATORY ACIDOSIS [None]
  - CARDIAC FAILURE CONGESTIVE [None]
  - WHITE BLOOD CELL COUNT INCREASED [None]
  - CORONARY ARTERY DISEASE [None]
  - HEART INJURY [None]
  - ACUTE CORONARY SYNDROME [None]
  - BRONCHOSPASM [None]
  - DECREASED APPETITE [None]
